FAERS Safety Report 7605743-4 (Version None)
Quarter: 2011Q3

REPORT INFORMATION
  Report Type: 
  Country: None (occurrence: None)
  Receive Date: 20110713
  Receipt Date: 20110701
  Transmission Date: 20111222
  Serious: Yes (Other)
  Sender: FDA-Public Use
  Company Number: US-BAYER-2011-039715

PATIENT
  Age: 37 Year
  Sex: Male
  Weight: 79.365 kg

DRUGS (1)
  1. AVELOX [Suspect]
     Indication: SINUSITIS
     Dosage: 400 MG, QD
     Route: 048
     Dates: start: 20110215, end: 20110221

REACTIONS (3)
  - SWELLING [None]
  - PAIN [None]
  - TENDON INJURY [None]
